FAERS Safety Report 19275908 (Version 1)
Quarter: 2021Q2

REPORT INFORMATION
  Report Type: Spontaneous
  Country: CZ (occurrence: CZ)
  Receive Date: 20210519
  Receipt Date: 20210519
  Transmission Date: 20210717
  Serious: Yes (Hospitalization, Other)
  Sender: FDA-Public Use
  Company Number: CZ-TEVA-2021-CZ-1912627

PATIENT
  Age: 57 Year
  Sex: Female

DRUGS (4)
  1. PEMETREXED. [Suspect]
     Active Substance: PEMETREXED
     Indication: LUNG ADENOCARCINOMA
     Dosage: 4 CYCLES
     Route: 065
     Dates: start: 202005, end: 2020
  2. CISPLATIN. [Suspect]
     Active Substance: CISPLATIN
     Indication: LUNG ADENOCARCINOMA
     Route: 065
     Dates: start: 202005, end: 2020
  3. PEMETREXED. [Suspect]
     Active Substance: PEMETREXED
     Indication: METASTATIC NEOPLASM
  4. CISPLATIN. [Suspect]
     Active Substance: CISPLATIN
     Indication: METASTATIC NEOPLASM

REACTIONS (13)
  - Headache [Unknown]
  - Pulmonary embolism [Unknown]
  - Respiratory failure [Unknown]
  - Vomiting [Unknown]
  - Renal impairment [Unknown]
  - Haemoptysis [Unknown]
  - Hypoacusis [Unknown]
  - Cognitive disorder [Unknown]
  - Amnestic disorder [Unknown]
  - Anaemia [Unknown]
  - Visual impairment [Unknown]
  - Behaviour disorder [Unknown]
  - Dehydration [Unknown]

NARRATIVE: CASE EVENT DATE: 2020
